FAERS Safety Report 5586396-6 (Version None)
Quarter: 2008Q1

REPORT INFORMATION
  Report Type: 
  Country: None (occurrence: None)
  Receive Date: 20080107
  Receipt Date: 20080107
  Transmission Date: 20080703
  Serious: Yes (Hospitalization)
  Sender: FDA-Public Use
  Company Number: None

PATIENT
  Sex: Female
  Weight: 70.4 kg

DRUGS (1)
  1. TEMOZOLOMIDE [Suspect]
     Dosage: 5535 MG

REACTIONS (2)
  - DIARRHOEA [None]
  - PLATELET COUNT DECREASED [None]
